FAERS Safety Report 12434548 (Version 1)
Quarter: 2016Q2

REPORT INFORMATION
  Report Type: Other
  Country: GB (occurrence: GB)
  Receive Date: 20160603
  Receipt Date: 20160603
  Transmission Date: 20160815
  Serious: Yes (Hospitalization)
  Sender: FDA-Public Use
  Company Number: GB-MYLANLABS-2016M1022510

PATIENT

DRUGS (3)
  1. VORTIOXETINE [Suspect]
     Active Substance: VORTIOXETINE
     Dosage: 10 MG, QD
  2. MIRTAZAPINE. [Suspect]
     Active Substance: MIRTAZAPINE
     Dosage: 45 MG, QD (AT NIGHT)
  3. TRAZODONE [Suspect]
     Active Substance: TRAZODONE HYDROCHLORIDE
     Dosage: 100 MG, QD (AT NIGHT)

REACTIONS (1)
  - Gastrointestinal haemorrhage [Recovering/Resolving]
